FAERS Safety Report 14128471 (Version 2)
Quarter: 2017Q4

REPORT INFORMATION
  Report Type: Spontaneous
  Country: JP (occurrence: JP)
  Receive Date: 20171026
  Receipt Date: 20171205
  Transmission Date: 20180321
  Serious: Yes (Hospitalization)
  Sender: FDA-Public Use
  Company Number: JP-DSJP-DSJ-2017-148117

PATIENT

DRUGS (5)
  1. THIAMAZOLE [Suspect]
     Active Substance: METHIMAZOLE
     Indication: BASEDOW^S DISEASE
     Dosage: 30MG/DAY
     Route: 065
  2. LIXIANA TABLETS [Suspect]
     Active Substance: EDOXABAN TOSYLATE
     Indication: THROMBOSIS PROPHYLAXIS
     Dosage: UNK
     Route: 048
  3. THIAMAZOLE [Suspect]
     Active Substance: METHIMAZOLE
     Dosage: 15MG/DAY
     Route: 065
  4. LUGOL [Concomitant]
     Active Substance: IODINE\POTASSIUM IODIDE
     Indication: BASEDOW^S DISEASE
     Dosage: 3ML/DAY
     Route: 065
  5. POTASSIUM IODIDE. [Concomitant]
     Active Substance: POTASSIUM IODIDE
     Indication: BASEDOW^S DISEASE
     Dosage: 100MG/DAY
     Route: 065

REACTIONS (1)
  - Pyrexia [Recovered/Resolved]
